FAERS Safety Report 6314914-9 (Version None)
Quarter: 2009Q3

REPORT INFORMATION
  Report Type: 
  Country: None (occurrence: None)
  Receive Date: 20090819
  Receipt Date: 20090811
  Transmission Date: 20100115
  Serious: Yes (Other)
  Sender: FDA-Public Use
  Company Number: A0785051A

PATIENT
  Age: 37 Year
  Sex: Female

DRUGS (4)
  1. LAMICTAL [Suspect]
     Indication: PARTIAL SEIZURES
     Dosage: 225MG TWICE PER DAY
     Route: 048
     Dates: start: 20060101
  2. LAMOTRIGINE [Suspect]
     Indication: CONVULSION
     Dosage: 225MG TWICE PER DAY
     Route: 048
     Dates: start: 20080801, end: 20080801
  3. ALCOHOL [Suspect]
  4. FOLIC ACID [Concomitant]

REACTIONS (4)
  - CONVULSION [None]
  - INSOMNIA [None]
  - PRODUCT SUBSTITUTION ISSUE [None]
  - TREATMENT NONCOMPLIANCE [None]
